FAERS Safety Report 22345498 (Version 2)
Quarter: 2023Q2

REPORT INFORMATION
  Report Type: Report from Study
  Country: ES (occurrence: ES)
  Receive Date: 20230519
  Receipt Date: 20230606
  Transmission Date: 20230721
  Serious: Yes (Other)
  Sender: FDA-Public Use
  Company Number: ES-ROCHE-3346071

PATIENT
  Age: 43 Year
  Sex: Female
  Weight: 77.5 kg

DRUGS (4)
  1. TRASTUZUMAB [Suspect]
     Active Substance: TRASTUZUMAB
     Indication: HER2 positive breast cancer
     Dosage: ON 15MAR2022, THE LAST DOSE BEFORE SAE
     Route: 058
     Dates: start: 20220223, end: 20230316
  2. CARBOPLATIN [Suspect]
     Active Substance: CARBOPLATIN
     Indication: HER2 positive breast cancer
     Dosage: ON 02MAR2022, THE LAST DOSE BEFORE SAE
     Route: 042
     Dates: start: 20220223, end: 20220614
  3. PACLITAXEL [Suspect]
     Active Substance: PACLITAXEL
     Indication: HER2 positive breast cancer
     Dosage: ON 15MAR2022, THE LAST DOSE BEFORE SAE
     Route: 042
     Dates: start: 20220223
  4. PERTUZUMAB [Suspect]
     Active Substance: PERTUZUMAB
     Indication: HER2 positive breast cancer
     Dosage: ON 15MAR2022, THE LAST DOSE BEFORE SAE
     Route: 058
     Dates: start: 20220223, end: 20230316

REACTIONS (1)
  - Infusion related reaction [Recovered/Resolved]

NARRATIVE: CASE EVENT DATE: 20220315
